FAERS Safety Report 23042377 (Version 1)
Quarter: 2023Q4

REPORT INFORMATION
  Report Type: Report from Study
  Country: US (occurrence: US)
  Receive Date: 20231008
  Receipt Date: 20231008
  Transmission Date: 20240110
  Serious: Yes (Hospitalization, Other)
  Sender: FDA-Public Use
  Company Number: US-ABBVIE-5435745

PATIENT
  Sex: Female
  Weight: 63 kg

DRUGS (17)
  1. IBRUTINIB [Suspect]
     Active Substance: IBRUTINIB
     Indication: Chronic lymphocytic leukaemia
     Route: 048
     Dates: start: 201709, end: 20180224
  2. IBRUTINIB [Suspect]
     Active Substance: IBRUTINIB
     Indication: Chronic lymphocytic leukaemia
     Route: 048
     Dates: start: 20180302
  3. RITUXAN [Suspect]
     Active Substance: RITUXIMAB
     Indication: Chronic lymphocytic leukaemia
     Route: 065
     Dates: start: 20230724, end: 20230724
  4. GAZYVA [Suspect]
     Active Substance: OBINUTUZUMAB
     Indication: Chronic lymphocytic leukaemia
     Route: 042
     Dates: start: 20230802, end: 20230802
  5. GAZYVA [Suspect]
     Active Substance: OBINUTUZUMAB
     Indication: Chronic lymphocytic leukaemia
     Dosage: MINIMAL DOSE THAT DAY MAYBE 40MG OR 50MG OUT OF THE TARGET OF 500MG
     Route: 042
     Dates: start: 20230823, end: 20230919
  6. GAZYVA [Suspect]
     Active Substance: OBINUTUZUMAB
     Indication: Chronic lymphocytic leukaemia
     Dosage: SHE GOT 500MG, BUT THEY WERE AIMING FOR 900MG, EVERY 28 DAYS AND THE OTHER ONE EVERY 21 DAYS,
     Route: 042
     Dates: start: 20230830
  7. LEVOFLOXACIN [Concomitant]
     Active Substance: LEVOFLOXACIN
     Indication: Product used for unknown indication
  8. ACYCLOVIR [Concomitant]
     Active Substance: ACYCLOVIR
     Indication: Product used for unknown indication
  9. ACALABRUTINIB [Concomitant]
     Active Substance: ACALABRUTINIB
     Indication: Product used for unknown indication
     Dosage: 100 MG BID
     Dates: start: 20230612, end: 202307
  10. CLARITIN [Concomitant]
     Active Substance: LORATADINE
     Indication: Product used for unknown indication
     Dosage: 1 TABLET PO PRN
     Route: 048
  11. NEUPOGEN [Concomitant]
     Active Substance: FILGRASTIM
     Indication: Product used for unknown indication
     Dosage: 480  G/KG , SUBCUTANEOUS 480 MCG SUBCUTANEOUSLY DAILY.
     Route: 058
  12. Caltrate 600+D plus [Concomitant]
     Indication: Product used for unknown indication
     Dosage: ORAL 600 MG (1,500 MY-GOO UNIT) 1 TABLET PO DAILY
     Route: 048
  13. PEPCID AC [Concomitant]
     Active Substance: FAMOTIDINE
     Indication: Product used for unknown indication
     Dosage: 25ML PER HOUR AND WOULD INCREASE THE SPEED
  14. PREDNISONE [Concomitant]
     Active Substance: PREDNISONE
     Indication: Product used for unknown indication
     Dosage: 25ML PER HOUR AND WOULD INCREASE THE SPEED
  15. FOLIC ACID [Concomitant]
     Active Substance: FOLIC ACID
     Indication: Product used for unknown indication
  16. ALDACTONE [Concomitant]
     Active Substance: SPIRONOLACTONE
     Indication: Product used for unknown indication
     Dosage: 1 TABLET ORALLY 2 TIMES PER DAY.
     Route: 048
  17. FAMOTIDINE [Concomitant]
     Active Substance: FAMOTIDINE
     Indication: Osteopenia
     Dosage: IV 20 MG INTRAVENOUSLY PIGGYBACK ONCE
     Route: 042
     Dates: start: 20180507

REACTIONS (29)
  - B-cell small lymphocytic lymphoma [Unknown]
  - Histamine intolerance [Unknown]
  - Fatigue [Unknown]
  - Oedema [Unknown]
  - Haemoglobin decreased [Recovered/Resolved]
  - Feeling hot [Recovered/Resolved]
  - Insomnia [Unknown]
  - Drug hypersensitivity [Unknown]
  - Infection [Unknown]
  - Platelet count decreased [Recovering/Resolving]
  - Tremor [Recovered/Resolved]
  - Splenomegaly [Unknown]
  - Diverticulum [Unknown]
  - Blood lactate dehydrogenase increased [Unknown]
  - Tachycardia [Unknown]
  - Flushing [Recovered/Resolved]
  - Melaena [Unknown]
  - Spinal operation [Unknown]
  - Off label use [Unknown]
  - Pulmonary hypertension [Unknown]
  - Bone density decreased [Unknown]
  - COVID-19 [Not Recovered/Not Resolved]
  - Lower respiratory tract infection [Unknown]
  - Neuralgia [Unknown]
  - Musculoskeletal chest pain [Unknown]
  - Osteopenia [Unknown]
  - Compression fracture [Recovered/Resolved]
  - Herpes zoster [Unknown]
  - Pyrexia [Unknown]

NARRATIVE: CASE EVENT DATE: 20180101
